FAERS Safety Report 6974792-1 (Version None)
Quarter: 2010Q3

REPORT INFORMATION
  Report Type: 
  Country: None (occurrence: None)
  Receive Date: 20100909
  Receipt Date: 20081205
  Transmission Date: 20110219
  Serious: No
  Sender: FDA-Public Use
  Company Number: US-WYE-H07143708

PATIENT
  Sex: Female
  Weight: 59.02 kg

DRUGS (2)
  1. PRISTIQ [Suspect]
     Indication: ANXIETY
     Dosage: 50 MG EVERY 1 TOT
     Route: 048
     Dates: start: 20081204, end: 20081204
  2. HYDROCHLOROTHIAZIDE [Concomitant]

REACTIONS (5)
  - APTYALISM [None]
  - DRY MOUTH [None]
  - DYSPHAGIA [None]
  - NAUSEA [None]
  - VISION BLURRED [None]
